FAERS Safety Report 8920758 (Version 1)
Quarter: 2012Q4

REPORT INFORMATION
  Report Type: 
  Country: US (occurrence: US)
  Receive Date: 20121121
  Receipt Date: 20121121
  Transmission Date: 20130627
  Serious: Yes (Other)
  Sender: FDA-Public Use
  Company Number: US-PFIZER INC-2012289618

PATIENT
  Age: 57 Year
  Sex: Male

DRUGS (1)
  1. CELEBREX [Suspect]
     Dosage: 3 times a day with meals (1 pill)
     Dates: start: 2003, end: 2010

REACTIONS (1)
  - Gastric ulcer [Unknown]
